FAERS Safety Report 8884731 (Version 1)
Quarter: 2012Q4

REPORT INFORMATION
  Report Type: 
  Country: US (occurrence: US)
  Receive Date: 20121102
  Receipt Date: 20121102
  Transmission Date: 20130627
  Serious: No
  Sender: FDA-Public Use
  Company Number: US-ASTRAZENECA-2012SE12993

PATIENT
  Age: 82 Year
  Sex: Male
  Weight: 78.9 kg

DRUGS (5)
  1. OMEPRAZOLE [Suspect]
     Indication: DYSPEPSIA
     Route: 048
  2. BRILINTA [Suspect]
     Route: 048
     Dates: start: 20120213
  3. ISOSORB [Concomitant]
     Indication: MYOCARDIAL INFARCTION
  4. HYVEE [Concomitant]
  5. BABY ASPIRIN [Concomitant]

REACTIONS (2)
  - Rash [Unknown]
  - Off label use [Unknown]
